FAERS Safety Report 17048410 (Version 2)
Quarter: 2019Q4

REPORT INFORMATION
  Report Type: Spontaneous
  Country: US (occurrence: US)
  Receive Date: 20191119
  Receipt Date: 20191122
  Transmission Date: 20200122
  Serious: No
  Sender: FDA-Public Use
  Company Number: US-PFIZER INC-2019496040

PATIENT
  Age: 80 Year
  Sex: Female
  Weight: 65.77 kg

DRUGS (4)
  1. LATANOPROST. [Suspect]
     Active Substance: LATANOPROST
     Indication: GLAUCOMA
     Dosage: 1 GTT (1 DROP IN EACH EYE), 1X/DAY (AT NIGHT)
  2. LATANOPROST. [Suspect]
     Active Substance: LATANOPROST
     Indication: INTRAOCULAR PRESSURE TEST NORMAL
  3. LATANOPROST. [Suspect]
     Active Substance: LATANOPROST
     Indication: MACULAR DEGENERATION
  4. TIMOLOL MALEATE. [Suspect]
     Active Substance: TIMOLOL MALEATE
     Dosage: UNK, 2X/DAY

REACTIONS (6)
  - Iris hyperpigmentation [Unknown]
  - Lacrimation increased [Not Recovered/Not Resolved]
  - Periorbital swelling [Unknown]
  - Mouth swelling [Unknown]
  - Visual impairment [Unknown]
  - Swelling face [Unknown]

NARRATIVE: CASE EVENT DATE: 2017
